FAERS Safety Report 5496948-X (Version None)
Quarter: 2007Q4

REPORT INFORMATION
  Report Type: 
  Country: None (occurrence: None)
  Receive Date: 20071025
  Receipt Date: 20071019
  Transmission Date: 20080405
  Serious: Yes (Hospitalization, Disabling)
  Sender: FDA-Public Use
  Company Number: B0460102A

PATIENT
  Sex: Male

DRUGS (9)
  1. VALTREX [Suspect]
     Indication: HERPES ZOSTER
     Dosage: 1G THREE TIMES PER DAY
     Route: 048
     Dates: start: 20070127, end: 20070201
  2. LONGES [Concomitant]
     Route: 048
  3. PERDIPINE LA [Concomitant]
     Route: 048
  4. MEDAZEPAM [Concomitant]
     Route: 048
  5. LENDORMIN [Concomitant]
     Route: 048
  6. SERMION [Concomitant]
     Route: 048
  7. GRANDAXIN [Concomitant]
     Route: 048
  8. MEILAX [Concomitant]
     Route: 048
  9. TRIPAMIDE [Concomitant]
     Route: 048

REACTIONS (2)
  - HEPATIC FUNCTION ABNORMAL [None]
  - JAUNDICE CHOLESTATIC [None]
